FAERS Safety Report 4373731-X (Version None)
Quarter: 2004Q2

REPORT INFORMATION
  Report Type: 
  Country: None (occurrence: None)
  Receive Date: 20040607
  Receipt Date: 20040607
  Transmission Date: 20050107
  Serious: Yes (Hospitalization)
  Sender: FDA-Public Use
  Company Number: None

PATIENT
  Age: 48 Year
  Sex: Female
  Weight: 87 kg

DRUGS (18)
  1. ENOXAPARIN SODIUM [Suspect]
     Indication: DEEP VEIN THROMBOSIS
     Dosage: 90 MG BID SUBCUTANEOUS
     Route: 058
     Dates: start: 20040311, end: 20040322
  2. ENOXAPARIN SODIUM [Suspect]
     Indication: PULMONARY EMBOLISM
     Dosage: 90 MG BID SUBCUTANEOUS
     Route: 058
     Dates: start: 20040311, end: 20040322
  3. TYLENOL [Concomitant]
  4. ALBUTEROL [Concomitant]
  5. ATENOLOL [Concomitant]
  6. CITALOPRAM [Concomitant]
  7. CYLOBENZAPRINE [Concomitant]
  8. LOVENOX [Concomitant]
  9. ISOSORBIDE MONONITRATE [Concomitant]
  10. LISINOPRIL [Concomitant]
  11. LORATADINE [Concomitant]
  12. METHADONE HCL [Concomitant]
  13. MIRTAZAPINE [Concomitant]
  14. NIACIN [Concomitant]
  15. KCL TAB [Concomitant]
  16. SIMVASTATIN [Concomitant]
  17. TORSEMIDE [Concomitant]
  18. COUMADIN [Concomitant]

REACTIONS (2)
  - INJECTION SITE ERYTHEMA [None]
  - INJECTION SITE HAEMORRHAGE [None]
